FAERS Safety Report 5384830-8 (Version None)
Quarter: 2007Q3

REPORT INFORMATION
  Report Type: 
  Country: None (occurrence: None)
  Receive Date: 20070711
  Receipt Date: 20070709
  Transmission Date: 20080115
  Serious: Yes (Hospitalization)
  Sender: FDA-Public Use
  Company Number: DE-GENENTECH-204439

PATIENT
  Sex: Male
  Weight: 90.5 kg

DRUGS (8)
  1. RITUXIMAB [Suspect]
     Indication: CHRONIC LYMPHOCYTIC LEUKAEMIA
     Dosage: 375 MG/M2, UNKNOWN
     Route: 042
     Dates: start: 20030826
  2. FLUDARABINE PHOSPHATE [Suspect]
     Indication: CHRONIC LYMPHOCYTIC LEUKAEMIA
     Dosage: 25 MG/M2, UNKNOWN
     Route: 042
     Dates: start: 20030904
  3. CYCLOPHOSPHAMIDE [Suspect]
     Indication: CHRONIC LYMPHOCYTIC LEUKAEMIA
     Dosage: 250 MG/M2, UNKNOWN
     Route: 042
     Dates: start: 20030904
  4. BENURON (GERMANY) [Concomitant]
     Dosage: 1000 MG, X2
     Route: 048
     Dates: start: 20030826, end: 20030826
  5. FENISTIL [Concomitant]
     Dosage: 1 UNK, SINGLE
     Route: 042
     Dates: start: 20030826, end: 20030826
  6. NACL .9% [Concomitant]
     Dosage: 1000 ML, SINGLE
     Route: 042
     Dates: start: 20030826, end: 20030829
  7. PANTOZOL [Concomitant]
     Dosage: 20 MG, UNKNOWN
     Route: 048
     Dates: start: 20030827, end: 20030827
  8. ZOFRAN [Concomitant]
     Dosage: 1 UNK, UNKNOWN
     Route: 042
     Dates: start: 20030828, end: 20030829

REACTIONS (2)
  - PYREXIA [None]
  - TRANSAMINASES INCREASED [None]
